FAERS Safety Report 7098997-7 (Version None)
Quarter: 2010Q4

REPORT INFORMATION
  Report Type: 
  Country: None (occurrence: None)
  Receive Date: 20101104
  Receipt Date: 20101025
  Transmission Date: 20110411
  Serious: Yes (Hospitalization, Other)
  Sender: FDA-Public Use
  Company Number: 2010AC000554

PATIENT
  Age: 76 Year
  Sex: Female

DRUGS (27)
  1. DIGOXIN [Suspect]
     Dosage: 0.25 MG; QD; PO
     Route: 048
     Dates: start: 20080102, end: 20080201
  2. ATROPINE [Concomitant]
  3. PROTONIX [Concomitant]
  4. ZOFRAN [Concomitant]
  5. MAGNESIUM SULFATE [Concomitant]
  6. WARFARIN [Concomitant]
  7. DOPAMINE [Concomitant]
  8. COREG [Concomitant]
  9. AMBIEN CR [Concomitant]
  10. BRETHINE [Concomitant]
  11. CORDORONE [Concomitant]
  12. DIGIBIND [Concomitant]
  13. K-DUR [Concomitant]
  14. VITAMIN K TAB [Concomitant]
  15. ALDACTONE [Concomitant]
  16. MYLICON [Concomitant]
  17. GENTAMICIN [Concomitant]
  18. DIPRIVAN [Concomitant]
  19. VERSED [Concomitant]
  20. NICOBID [Concomitant]
  21. SUBLIMAZE PRESERVATIVE FREE [Concomitant]
  22. ANCEF [Concomitant]
  23. VASOTEC [Concomitant]
  24. SYNTHROID [Concomitant]
  25. PERCOCET [Concomitant]
  26. PROMETHAZINE [Concomitant]
  27. MAGNESIUM OXIDE [Concomitant]

REACTIONS (5)
  - ECONOMIC PROBLEM [None]
  - LOSS OF CONSCIOUSNESS [None]
  - MALAISE [None]
  - MULTIPLE INJURIES [None]
  - THERAPEUTIC AGENT TOXICITY [None]
